FAERS Safety Report 4464529-2 (Version None)
Quarter: 2004Q3

REPORT INFORMATION
  Report Type: 
  Country: None (occurrence: None)
  Receive Date: 20040929
  Receipt Date: 20040927
  Transmission Date: 20050211
  Serious: Yes (Other)
  Sender: FDA-Public Use
  Company Number: THQ2004A00858

PATIENT
  Age: 30 Year
  Sex: Female

DRUGS (1)
  1. LEUPROLIDE ACETATE [Suspect]
     Indication: ANAEMIA
     Dosage: 3.75 MG (3.75 MG,1 IN 1 M); INJECTION
     Dates: start: 20031120, end: 20040113

REACTIONS (2)
  - LEIOMYOSARCOMA [None]
  - UTERINE LEIOMYOMA [None]
